FAERS Safety Report 6698503-2 (Version None)
Quarter: 2010Q2

REPORT INFORMATION
  Report Type: 
  Country: None (occurrence: None)
  Receive Date: 20100426
  Receipt Date: 20100426
  Transmission Date: 20101027
  Serious: Yes (Other)
  Sender: FDA-Public Use
  Company Number: None

PATIENT
  Age: 51 Year
  Sex: Female
  Weight: 65.7716 kg

DRUGS (2)
  1. PROPRANOLOL [Suspect]
     Indication: DEPRESSION
     Dosage: 1 TABLET TWICE PER DAY PO
     Route: 048
     Dates: start: 20091223, end: 20091227
  2. PAROXETINE HCL [Suspect]
     Indication: CARDIAC DISORDER
     Dosage: 1 TABLET TWICE PER  DAY PO
     Route: 048

REACTIONS (17)
  - ANXIETY [None]
  - APHAGIA [None]
  - APHASIA [None]
  - BALANCE DISORDER [None]
  - DEPRESSED LEVEL OF CONSCIOUSNESS [None]
  - DEPRESSION [None]
  - ECONOMIC PROBLEM [None]
  - HYPOTENSION [None]
  - IMPAIRED WORK ABILITY [None]
  - INSOMNIA [None]
  - MALNUTRITION [None]
  - MOVEMENT DISORDER [None]
  - PANIC DISORDER [None]
  - PRODUCT QUALITY ISSUE [None]
  - THYROTOXIC CRISIS [None]
  - TREMOR [None]
  - WEIGHT DECREASED [None]
